FAERS Safety Report 21024046 (Version 1)
Quarter: 2022Q2

REPORT INFORMATION
  Report Type: Report from Study
  Country: GB (occurrence: GB)
  Receive Date: 20220629
  Receipt Date: 20220629
  Transmission Date: 20220720
  Serious: Yes (Other)
  Sender: FDA-Public Use
  Company Number: GB-GILEAD-2022-0587614

PATIENT
  Sex: Female

DRUGS (1)
  1. SACITUZUMAB GOVITECAN [Suspect]
     Active Substance: SACITUZUMAB GOVITECAN
     Indication: Triple negative breast cancer
     Dosage: UNK
     Route: 065
     Dates: start: 2022

REACTIONS (1)
  - General physical health deterioration [Unknown]

NARRATIVE: CASE EVENT DATE: 20220101
